FAERS Safety Report 5849318-6 (Version None)
Quarter: 2008Q3

REPORT INFORMATION
  Report Type: 
  Country: None (occurrence: None)
  Receive Date: 20080819
  Receipt Date: 20080811
  Transmission Date: 20090109
  Serious: Yes (Hospitalization, Other)
  Sender: FDA-Public Use
  Company Number: CA-BAYER-200821779NA

PATIENT
  Age: 54 Year
  Sex: Male
  Weight: 74 kg

DRUGS (22)
  1. CAMPATH [Suspect]
     Indication: PERIPHERAL T-CELL LYMPHOMA UNSPECIFIED
     Dosage: AS USED: 10 MG
     Route: 058
     Dates: start: 20080306, end: 20080306
  2. CAMPATH [Suspect]
     Dosage: TOTAL DAILY DOSE: 10 MG
     Route: 058
     Dates: start: 20080313, end: 20080313
  3. CAMPATH [Suspect]
     Dates: start: 20070920
  4. CYCLOPHOSPHAMIDE [Suspect]
     Indication: PERIPHERAL T-CELL LYMPHOMA UNSPECIFIED
     Dates: start: 20070920
  5. DOXORUBICIN HCL [Suspect]
     Indication: PERIPHERAL T-CELL LYMPHOMA UNSPECIFIED
     Dates: start: 20070920
  6. VINCRISTINE [Suspect]
     Indication: PERIPHERAL T-CELL LYMPHOMA UNSPECIFIED
     Dates: start: 20070920
  7. PREDNISONE TAB [Suspect]
     Indication: PERIPHERAL T-CELL LYMPHOMA UNSPECIFIED
     Dates: start: 20070920
  8. OMEPRAZOLE [Concomitant]
     Indication: GASTROOESOPHAGEAL REFLUX DISEASE
     Dates: start: 20071217
  9. VENTOLIN [Concomitant]
     Indication: ASTHMA
     Dates: start: 19700101
  10. MORPHINE [Concomitant]
     Indication: ABDOMINAL PAIN
     Dates: start: 20070901, end: 20080601
  11. SEPTRA [Concomitant]
     Indication: INFECTION PROPHYLAXIS
     Dates: start: 20070920
  12. FAMVIR [Concomitant]
     Indication: INFECTION PROPHYLAXIS
     Dates: start: 20080704, end: 20080711
  13. FAMVIR [Concomitant]
     Dates: start: 20070920
  14. VALGANCICLOVIR HCL [Concomitant]
     Indication: CYTOMEGALOVIRUS TEST POSITIVE
     Dosage: TOTAL DAILY DOSE: 900 MG
     Route: 048
     Dates: start: 20071204
  15. PANTOPRAZOLE SODIUM [Concomitant]
     Dosage: TOTAL DAILY DOSE: 80 MG
     Route: 048
  16. TAMSULOSIN HCL [Concomitant]
     Indication: POLLAKIURIA
     Dosage: TOTAL DAILY DOSE: 0.4 MG
     Route: 048
  17. PROCHLORPERAZINE [Concomitant]
     Route: 048
  18. SENOKOT [Concomitant]
     Route: 048
  19. OXYCOCET [Concomitant]
     Indication: PAIN IN EXTREMITY
     Dates: start: 20080423
  20. TYLENOL [Concomitant]
     Indication: PREMEDICATION
  21. BENADRYL [Concomitant]
     Indication: PREMEDICATION
  22. NAPROXEN [Concomitant]
     Dosage: TOTAL DAILY DOSE: 1000 MG
     Route: 048

REACTIONS (21)
  - ABDOMINAL PAIN [None]
  - ALANINE AMINOTRANSFERASE ABNORMAL [None]
  - ASPARTATE AMINOTRANSFERASE INCREASED [None]
  - BK VIRUS INFECTION [None]
  - BLADDER PAIN [None]
  - BLOOD ALKALINE PHOSPHATASE ABNORMAL [None]
  - CELLULITIS [None]
  - CONSTIPATION [None]
  - COUGH [None]
  - CRYPTOCOCCOSIS [None]
  - CYSTITIS [None]
  - DYSURIA [None]
  - FEBRILE NEUTROPENIA [None]
  - JC VIRUS INFECTION [None]
  - LYMPHOPENIA [None]
  - PELVIC PAIN [None]
  - PNEUMONIA [None]
  - PNEUMONIA CRYPTOCOCCAL [None]
  - POLLAKIURIA [None]
  - URINE CYTOMEGALOVIRUS POSITIVE [None]
  - WHEEZING [None]
